FAERS Safety Report 4997845-6 (Version None)
Quarter: 2006Q2

REPORT INFORMATION
  Report Type: 
  Country: None (occurrence: None)
  Receive Date: 20060510
  Receipt Date: 20060505
  Transmission Date: 20061013
  Serious: Yes (Life-Threatening, Other)
  Sender: FDA-Public Use
  Company Number: DE-JNJFOC-20060306361

PATIENT
  Sex: Female
  Weight: 100 kg

DRUGS (6)
  1. DURAGESIC-100 [Suspect]
     Indication: PAIN
     Route: 062
  2. MARCUMAR [Interacting]
     Dosage: 1/2 TO 1 TABLET.
     Route: 048
  3. OMEPRAZOLE [Concomitant]
     Route: 065
  4. NOVODIGAL [Concomitant]
     Dosage: 0.2
     Route: 065
  5. FUROSEMIDE [Concomitant]
     Route: 065
  6. ENALAPRIL MALEATE [Concomitant]
     Route: 065

REACTIONS (2)
  - DRUG INTERACTION [None]
  - INTERNATIONAL NORMALISED RATIO INCREASED [None]
